FAERS Safety Report 10618248 (Version 2)
Quarter: 2014Q4

REPORT INFORMATION
  Report Type: Report from Study
  Country: TW (occurrence: TW)
  Receive Date: 20141202
  Receipt Date: 20141219
  Transmission Date: 20150529
  Serious: Yes (Death)
  Sender: FDA-Public Use
  Company Number: TW-BIOGENIDEC-2014BI121370

PATIENT
  Age: 32 Year
  Sex: Male

DRUGS (3)
  1. TYSABRI [Suspect]
     Active Substance: NATALIZUMAB
     Indication: RELAPSING-REMITTING MULTIPLE SCLEROSIS
     Route: 042
     Dates: start: 20120224, end: 20141022
  2. DULCOLAX EC [Concomitant]
     Indication: CONSTIPATION
  3. SIRDALUD [Concomitant]
     Active Substance: TIZANIDINE
     Indication: MUSCLE SPASTICITY
     Dates: start: 20141022

REACTIONS (6)
  - Hyperhidrosis [Unknown]
  - Pyrexia [Unknown]
  - Influenza like illness [Unknown]
  - Sputum increased [Unknown]
  - Fall [Recovered/Resolved]
  - Sudden death [Fatal]

NARRATIVE: CASE EVENT DATE: 20141021
